FAERS Safety Report 4431376-7 (Version None)
Quarter: 2004Q3

REPORT INFORMATION
  Report Type: 
  Country: None (occurrence: None)
  Receive Date: 20040820
  Receipt Date: 20040820
  Transmission Date: 20050211
  Serious: Yes (Congenital Anomaly)
  Sender: FDA-Public Use
  Company Number: None

PATIENT
  Sex: Male

DRUGS (3)
  1. DIFFERIN [Suspect]
     Indication: ACNE
     Dosage: SMALL AMOUNT QHS TOPICAL
     Route: 061
     Dates: start: 19990101, end: 20010101
  2. ALBUTEROL [Concomitant]
  3. AMOXICILLIN [Concomitant]

REACTIONS (1)
  - NEUROFIBROMATOSIS [None]
